FAERS Safety Report 9500959 (Version 1)
Quarter: 2013Q1

REPORT INFORMATION
  Report Type: Spontaneous
  Country: US (occurrence: None)
  Receive Date: 20130116
  Receipt Date: 20130116
  Transmission Date: 20140127
  Serious: Yes (Hospitalization)
  Sender: FDA-Public Use
  Company Number: CTI_01491_2012

PATIENT
  Sex: 0

DRUGS (1)
  1. CUROSURF [Suspect]
     Indication: NEONATAL RESPIRATORY DISTRESS SYNDROME
     Dosage: DF, 240 MG 3ML VIRAL
     Dates: start: 2012

REACTIONS (1)
  - Pulmonary haemorrhage [None]
